FAERS Safety Report 11002930 (Version 2)
Quarter: 2015Q3

REPORT INFORMATION
  Report Type: Report from Study
  Country: JP (occurrence: JP)
  Receive Date: 20150408
  Receipt Date: 20150713
  Transmission Date: 20151125
  Serious: Yes (Life-Threatening, Hospitalization, Disabling, Other)
  Sender: FDA-Public Use
  Company Number: JP-GILEAD-2015-0147473

PATIENT
  Age: 37 Year
  Sex: Female

DRUGS (12)
  1. PROCYLIN [Concomitant]
     Active Substance: BERAPROST SODIUM
     Dosage: UNK
  2. PROGRAF [Concomitant]
     Active Substance: TACROLIMUS\TACROLIMUS ANHYDROUS
     Dosage: UNK
  3. BREDININ [Concomitant]
     Active Substance: MIZORIBINE
     Dosage: UNK
     Dates: start: 20130219
  4. AMBRISENTAN [Suspect]
     Active Substance: AMBRISENTAN
     Indication: PERIPHERAL VASCULAR DISORDER
  5. AMBRISENTAN [Suspect]
     Active Substance: AMBRISENTAN
     Indication: NECROSIS
  6. ANPLAG [Concomitant]
     Active Substance: SARPOGRELATE
     Dosage: UNK
  7. PREDNISOLONE. [Concomitant]
     Active Substance: PREDNISOLONE
     Dosage: UNK
  8. JUVELA N [Concomitant]
     Active Substance: TOCOPHERYL NICOTINATE, D-.ALPHA.
     Dosage: UNK
  9. OPALMON [Concomitant]
     Active Substance: LIMAPROST
     Dosage: UNK
  10. BONOTEO [Concomitant]
     Active Substance: MINODRONIC ACID
     Dosage: UNK
     Dates: start: 20121204
  11. AMBRISENTAN [Suspect]
     Active Substance: AMBRISENTAN
     Indication: PULMONARY ARTERIAL HYPERTENSION
     Dosage: 5 MG, QD
     Route: 048
     Dates: start: 20120710, end: 20140819
  12. PREDNISOLONE. [Concomitant]
     Active Substance: PREDNISOLONE
     Dosage: UNK

REACTIONS (3)
  - Fluid retention [Unknown]
  - Oedema peripheral [Recovered/Resolved]
  - Acute kidney injury [Recovering/Resolving]

NARRATIVE: CASE EVENT DATE: 20140204
